FAERS Safety Report 4925704-3 (Version None)
Quarter: 2006Q1

REPORT INFORMATION
  Report Type: 
  Country: None (occurrence: None)
  Receive Date: 20060228
  Receipt Date: 20050126
  Transmission Date: 20060701
  Serious: Yes (Hospitalization, Other)
  Sender: FDA-Public Use
  Company Number: US-GLAXOSMITHKLINE-A0542441A

PATIENT
  Sex: Female

DRUGS (3)
  1. LAMICTAL [Suspect]
     Indication: BIPOLAR DISORDER
     Route: 048
  2. TEGRETOL [Suspect]
  3. MULTIPLE MEDICATIONS [Suspect]

REACTIONS (2)
  - OVERDOSE [None]
  - WHITE BLOOD CELL COUNT DECREASED [None]
